FAERS Safety Report 9054281 (Version 2)
Quarter: 2013Q1

REPORT INFORMATION
  Report Type: Spontaneous
  Country: GB (occurrence: GB)
  Receive Date: 20130208
  Receipt Date: 20130228
  Transmission Date: 20140127
  Serious: Yes (Other)
  Sender: FDA-Public Use
  Company Number: GB-GLAXOSMITHKLINE-B0865846A

PATIENT
  Age: 28 None
  Sex: Female
  Weight: 58 kg

DRUGS (2)
  1. PAZOPANIB [Suspect]
     Indication: FIBROSARCOMA METASTATIC
     Route: 065
     Dates: start: 20111207
  2. THYROXINE [Concomitant]
     Route: 048
     Dates: start: 2011

REACTIONS (5)
  - Ventricular hypokinesia [Recovering/Resolving]
  - Ejection fraction decreased [Recovering/Resolving]
  - Blood pressure increased [Recovering/Resolving]
  - Dyspnoea exertional [Recovering/Resolving]
  - Hypertension [Recovering/Resolving]
